FAERS Safety Report 13344034 (Version 1)
Quarter: 2017Q1

REPORT INFORMATION
  Report Type: Spontaneous
  Country: US (occurrence: US)
  Receive Date: 20170316
  Receipt Date: 20170316
  Transmission Date: 20170428
  Serious: Yes (Other)
  Sender: FDA-Public Use
  Company Number: US-BAUSCH-BL-2017-006855

PATIENT
  Age: 56 Year
  Sex: Female
  Weight: 71.28 kg

DRUGS (3)
  1. ALREX [Suspect]
     Active Substance: LOTEPREDNOL ETABONATE
     Indication: EYE INFLAMMATION
     Dosage: 1 DROP IN THE RIGHT EYE ONCE DAILY
     Route: 047
     Dates: end: 201606
  2. COMBIGAN [Suspect]
     Active Substance: BRIMONIDINE TARTRATE\TIMOLOL MALEATE
     Indication: GLAUCOMA
     Route: 047
  3. LUMIGAN [Concomitant]
     Active Substance: BIMATOPROST
     Indication: GLAUCOMA
     Dosage: 1 DROP IN THE RIGHT EYE IN THE EVENING
     Route: 047

REACTIONS (7)
  - Dry eye [Recovering/Resolving]
  - Ocular hyperaemia [Recovering/Resolving]
  - Intraocular pressure increased [Recovering/Resolving]
  - Neoplasm malignant [Recovering/Resolving]
  - Disease recurrence [Recovering/Resolving]
  - Eye irritation [Recovering/Resolving]
  - Cataract [Recovering/Resolving]

NARRATIVE: CASE EVENT DATE: 2011
